FAERS Safety Report 21503864 (Version 3)
Quarter: 2022Q4

REPORT INFORMATION
  Report Type: Spontaneous
  Country: JP (occurrence: JP)
  Receive Date: 20221025
  Receipt Date: 20221230
  Transmission Date: 20230113
  Serious: Yes (Hospitalization, Disabling)
  Sender: FDA-Public Use
  Company Number: JP-DSJP-DSJ-2022-138047

PATIENT
  Age: 90 Year
  Sex: Male
  Weight: 58 kg

DRUGS (5)
  1. EDOXABAN TOSYLATE [Suspect]
     Active Substance: EDOXABAN TOSYLATE
     Indication: Atrial fibrillation
     Dosage: 15 MG, QD
     Route: 048
     Dates: end: 20221018
  2. LANSOPRAZOLE [Concomitant]
     Active Substance: LANSOPRAZOLE
     Indication: Gastrooesophageal reflux disease
     Dosage: 15 MG, QD
     Route: 048
  3. MAGNESIUM OXIDE [Concomitant]
     Active Substance: MAGNESIUM OXIDE
     Dosage: 330 MG, BID
     Route: 048
  4. BICALUTAMIDE [Concomitant]
     Active Substance: BICALUTAMIDE
     Indication: Prostate cancer
     Dosage: 80 MG, QD
     Route: 048
  5. FLAVOXATE HYDROCHLORIDE [Concomitant]
     Active Substance: FLAVOXATE HYDROCHLORIDE
     Indication: Prostate cancer
     Dosage: 200 MG, QD
     Route: 048

REACTIONS (2)
  - Embolic stroke [Unknown]
  - Cataract operation [Unknown]

NARRATIVE: CASE EVENT DATE: 20221016
